FAERS Safety Report 8221640-8 (Version None)
Quarter: 2012Q1

REPORT INFORMATION
  Report Type: 
  Country: None (occurrence: None)
  Receive Date: 20120320
  Receipt Date: 20120314
  Transmission Date: 20120608
  Serious: Yes (Death)
  Sender: FDA-Public Use
  Company Number: US-PFIZER INC-2012061261

PATIENT
  Sex: Male
  Weight: 163 kg

DRUGS (14)
  1. NORCO [Concomitant]
     Dosage: UNK
  2. BENICAR [Concomitant]
     Dosage: UNK
  3. LANTUS [Concomitant]
     Dosage: UNK
  4. TRICOR [Concomitant]
     Dosage: UNK
  5. CYANOCOBALAMIN/FOLIC ACID/PYRIDOXINE HYDROCHLORIDE [Concomitant]
     Dosage: UNK
  6. PROTONIX [Suspect]
     Indication: EUSTACHIAN TUBE DYSFUNCTION
     Dosage: 40 MG, 1X/DAY
     Route: 048
     Dates: start: 20070403
  7. ALPRAZOLAM [Concomitant]
     Dosage: UNK
  8. VITAMIN D [Concomitant]
     Dosage: UNK
  9. VITAMIN E [Concomitant]
     Dosage: UNK
  10. NIASPAN [Concomitant]
     Dosage: UNK
  11. CITALOPRAM [Concomitant]
     Dosage: UNK
  12. LIPITOR [Concomitant]
     Dosage: UNK
  13. FUROSEMIDE [Concomitant]
     Dosage: UNK
  14. NOVOLOG [Concomitant]
     Dosage: UNK

REACTIONS (1)
  - DEATH [None]
